FAERS Safety Report 10185948 (Version 3)
Quarter: 2014Q2

REPORT INFORMATION
  Report Type: Report from Study
  Country: RU (occurrence: RU)
  Receive Date: 20140521
  Receipt Date: 20140607
  Transmission Date: 20141212
  Serious: Yes (Hospitalization)
  Sender: FDA-Public Use
  Company Number: PHHO2013RU016766

PATIENT
  Age: 64 Year
  Sex: Female
  Weight: 103 kg

DRUGS (2)
  1. AMN107 [Suspect]
     Indication: CHRONIC MYELOID LEUKAEMIA
     Dosage: 300 MG, BID
     Route: 048
     Dates: start: 20080605, end: 20131219
  2. AMN107 [Suspect]
     Dosage: UNK
     Dates: start: 20140109

REACTIONS (1)
  - Angina unstable [Recovered/Resolved]
